FAERS Safety Report 14327149 (Version 3)
Quarter: 2018Q1

REPORT INFORMATION
  Report Type: Spontaneous
  Country: GB (occurrence: GB)
  Receive Date: 20171227
  Receipt Date: 20180214
  Transmission Date: 20180509
  Serious: Yes (Death, Other)
  Sender: FDA-Public Use
  Company Number: PHHY2017GB194341

PATIENT
  Age: 69 Year
  Sex: Male

DRUGS (2)
  1. METHOTREXATE SODIUM. [Suspect]
     Active Substance: METHOTREXATE SODIUM
     Indication: PSORIASIS
     Dosage: 20 MG, QW
     Route: 048
     Dates: start: 200411, end: 201504
  2. METHOTREXATE SODIUM. [Suspect]
     Active Substance: METHOTREXATE SODIUM
     Dosage: 20 MG, WEEKLY
     Route: 048
     Dates: start: 200411, end: 201504

REACTIONS (4)
  - Hepatic failure [Fatal]
  - Death [Fatal]
  - Nodular regenerative hyperplasia [Fatal]
  - Portal hypertension [Fatal]

NARRATIVE: CASE EVENT DATE: 201504
